FAERS Safety Report 5794918-5 (Version None)
Quarter: 2008Q2

REPORT INFORMATION
  Report Type: 
  Country: None (occurrence: None)
  Receive Date: 20080630
  Receipt Date: 20080620
  Transmission Date: 20081010
  Serious: Yes (Other)
  Sender: FDA-Public Use
  Company Number: US-PURDUE-USA_2008_0033590

PATIENT
  Age: 86 Year
  Sex: Female

DRUGS (5)
  1. COLACE CAPSULES 50 MG [Suspect]
     Indication: CONSTIPATION
     Dosage: 1 CAPSL, SEE TEXT
     Route: 048
     Dates: start: 20080601
  2. NORVASC [Concomitant]
  3. NAMENDA [Concomitant]
  4. KEPPRA [Concomitant]
  5. ASPIRIN [Concomitant]

REACTIONS (6)
  - COUGH [None]
  - ORAL DISCOMFORT [None]
  - PNEUMONIA ASPIRATION [None]
  - THROAT IRRITATION [None]
  - VOMITING [None]
  - WRONG TECHNIQUE IN DRUG USAGE PROCESS [None]
